FAERS Safety Report 5809817-X (Version None)
Quarter: 2008Q3

REPORT INFORMATION
  Report Type: 
  Country: None (occurrence: None)
  Receive Date: 20080714
  Receipt Date: 20080714
  Transmission Date: 20090109
  Serious: Yes (Other)
  Sender: FDA-Public Use
  Company Number: None

PATIENT
  Age: 50 Year
  Sex: Male
  Weight: 111.1313 kg

DRUGS (1)
  1. LEVAQUIN [Suspect]
     Dosage: 750MG 1 X DAY PO
     Route: 048
     Dates: start: 20080507

REACTIONS (4)
  - ARTHRALGIA [None]
  - BACK PAIN [None]
  - JOINT STIFFNESS [None]
  - MUSCULOSKELETAL STIFFNESS [None]
